FAERS Safety Report 6951582-7 (Version None)
Quarter: 2010Q3

REPORT INFORMATION
  Report Type: 
  Country: None (occurrence: None)
  Receive Date: 20100828
  Receipt Date: 20100329
  Transmission Date: 20110219
  Serious: No
  Sender: FDA-Public Use
  Company Number: US-ABBOTT-10P-163-0636292-00

PATIENT
  Sex: Male
  Weight: 81.72 kg

DRUGS (6)
  1. NIASPAN [Suspect]
     Indication: CORONARY ARTERY DISEASE
     Dates: start: 20060401
  2. FISH OIL [Concomitant]
     Indication: PRODUCT USED FOR UNKNOWN INDICATION
  3. MAGNESIUM [Concomitant]
     Indication: PRODUCT USED FOR UNKNOWN INDICATION
  4. IMMUNE ENHANCEMENT OTC [Concomitant]
     Indication: PRODUCT USED FOR UNKNOWN INDICATION
  5. LUKENE [Concomitant]
     Indication: PRODUCT USED FOR UNKNOWN INDICATION
  6. DECLINED REST OF MEDICATIONS [Concomitant]
     Indication: PRODUCT USED FOR UNKNOWN INDICATION

REACTIONS (1)
  - DYSPHAGIA [None]
